FAERS Safety Report 4706478-8 (Version None)
Quarter: 2005Q3

REPORT INFORMATION
  Report Type: 
  Country: None (occurrence: None)
  Receive Date: 20050705
  Receipt Date: 20050607
  Transmission Date: 20060218
  Serious: Yes (Hospitalization)
  Sender: FDA-Public Use
  Company Number: JP-GLAXOSMITHKLINE-B0383960A

PATIENT
  Age: 54 Year
  Sex: Female
  Weight: 52 kg

DRUGS (4)
  1. VALTREX [Suspect]
     Indication: KERATITIS HERPETIC
     Dosage: 500MG THREE TIMES PER DAY
     Route: 048
     Dates: start: 20050509, end: 20050518
  2. UNASYN [Suspect]
     Indication: FEBRILE NEUTROPENIA
     Dosage: 3G TWICE PER DAY
     Route: 042
     Dates: start: 20050507, end: 20050513
  3. PASIL [Suspect]
     Indication: FEBRILE NEUTROPENIA
     Dosage: 500MG TWICE PER DAY
     Route: 042
     Dates: start: 20050507, end: 20050513
  4. ZOVIRAX [Concomitant]
     Indication: KERATITIS HERPETIC
     Route: 031
     Dates: start: 20050509, end: 20050518

REACTIONS (8)
  - C-REACTIVE PROTEIN INCREASED [None]
  - DRUG ERUPTION [None]
  - EOSINOPHILIA [None]
  - GENERALISED ERYTHEMA [None]
  - HEPATIC FUNCTION ABNORMAL [None]
  - HYPERSENSITIVITY [None]
  - PRURITUS [None]
  - PYREXIA [None]
